FAERS Safety Report 4786694-X (Version None)
Quarter: 2005Q4

REPORT INFORMATION
  Report Type: 
  Country: None (occurrence: None)
  Receive Date: 20051004
  Receipt Date: 20050920
  Transmission Date: 20060501
  Serious: Yes (Death)
  Sender: FDA-Public Use
  Company Number: GB-BOEHRINGER INGELHEIM PHARMACEUTICALS, INC.-2005-UK-01806UK

PATIENT
  Age: 93 Year
  Sex: Female

DRUGS (4)
  1. MOBIC [Suspect]
     Indication: OSTEOARTHRITIS
     Route: 048
     Dates: start: 20050216, end: 20050730
  2. ADCAL-D3 [Concomitant]
     Dosage: 1 TWICE DAILY
     Route: 048
     Dates: start: 20030216
  3. BENDROFLUMETHIAZIDE [Concomitant]
     Dosage: 2.5 MG ONCE DAILY
     Route: 048
     Dates: start: 20030216
  4. VALSARTAN [Concomitant]
     Dosage: 40 MG ONCE DAILY
     Route: 048
     Dates: start: 20030216

REACTIONS (1)
  - ISCHAEMIC STROKE [None]
